FAERS Safety Report 8432786-3 (Version None)
Quarter: 2012Q2

REPORT INFORMATION
  Report Type: 
  Country: None (occurrence: None)
  Receive Date: 20120613
  Receipt Date: 20120608
  Transmission Date: 20120825
  Serious: Yes (Other)
  Sender: FDA-Public Use
  Company Number: US-PFIZER INC-2010074712

PATIENT
  Sex: Male
  Weight: 56 kg

DRUGS (15)
  1. LISINOPRIL [Concomitant]
     Dosage: 20 MG, 1X/DAY
     Route: 048
     Dates: start: 20100222, end: 20110324
  2. DILANTIN [Suspect]
     Dosage: 200 MG, 2X/DAY
     Route: 048
     Dates: start: 20090813, end: 20110317
  3. DILANTIN [Suspect]
     Indication: CONVULSION
     Dosage: 300 MG, 1X/DAY
     Route: 048
     Dates: start: 20080701, end: 20090826
  4. GALANTAMINE [Concomitant]
     Indication: AMNESIA
     Dosage: 8 MG, 1X/DAY
     Route: 048
     Dates: start: 20090715, end: 20100716
  5. NICOTINE [Concomitant]
     Dosage: 7 MG, 1X/DAY
     Dates: start: 20100222, end: 20100324
  6. BISACODYL [Concomitant]
     Indication: CONSTIPATION
     Dosage: 10 MG, 2X/DAY (AS NEEDED)
     Route: 048
     Dates: start: 20080801, end: 20100528
  7. LISINOPRIL [Concomitant]
     Indication: BLOOD PRESSURE
     Dosage: 40 MG, 1X/DAY
     Route: 048
     Dates: start: 20090222, end: 20100324
  8. DILANTIN [Suspect]
     Dosage: 400 MG, 1X/DAY
     Route: 048
     Dates: start: 20081008, end: 20100716
  9. DILANTIN [Suspect]
     Dosage: 500 MG, 1X/DAY
     Route: 048
     Dates: start: 20090510
  10. CITALOPRAM [Concomitant]
     Indication: DEPRESSION
     Dosage: 20 MG, 1X/DAY
     Route: 048
     Dates: start: 20080825, end: 20110617
  11. CALCIUM WITH VITAMIN D [Concomitant]
     Indication: MINERAL SUPPLEMENTATION
     Dosage: 1 TABLET EVERY MORNING AND 2 TABLETS AT BED TIME
     Route: 048
     Dates: start: 20090715, end: 20110317
  12. LEVETIRACETAM [Concomitant]
     Dosage: 500 MG, 2X/DAY
     Route: 048
     Dates: start: 20090803, end: 20110317
  13. OMEPRAZOLE [Concomitant]
     Indication: GASTROOESOPHAGEAL REFLUX DISEASE
     Dosage: 20 MG, 2X/DAY, 30 TO 45 MIN PRIOR TO THE FIRST MEAL
     Route: 048
     Dates: start: 20090813, end: 20100814
  14. HYDROCODONE BITARTRATE + ACETAMINOPHEN [Concomitant]
     Indication: PAIN
     Dosage: 500 MG, 2X/DAY
     Route: 048
     Dates: start: 20080801, end: 20100916
  15. GALANTAMINE [Concomitant]
     Dosage: 24 MG, 1X/DAY
     Route: 048
     Dates: start: 20100316, end: 20110317

REACTIONS (1)
  - STEVENS-JOHNSON SYNDROME [None]
